FAERS Safety Report 12148084 (Version 1)
Quarter: 2016Q1

REPORT INFORMATION
  Report Type: Spontaneous
  Country: US (occurrence: US)
  Receive Date: 20160304
  Receipt Date: 20160304
  Transmission Date: 20160526
  Serious: No
  Sender: FDA-Public Use
  Company Number: US-PFIZER INC-2016131580

PATIENT
  Age: 40 Year
  Sex: Female

DRUGS (4)
  1. CORTISONE ACETATE. [Suspect]
     Active Substance: CORTISONE ACETATE
     Dosage: UNK
  2. GABAPENTIN. [Suspect]
     Active Substance: GABAPENTIN
     Dosage: UNK
  3. LYRICA [Suspect]
     Active Substance: PREGABALIN
     Dosage: UNK
  4. PREDNISONE. [Suspect]
     Active Substance: PREDNISONE

REACTIONS (1)
  - Drug hypersensitivity [Not Recovered/Not Resolved]
